FAERS Safety Report 6553653-6 (Version None)
Quarter: 2010Q1

REPORT INFORMATION
  Report Type: 
  Country: None (occurrence: None)
  Receive Date: 20100127
  Receipt Date: 20100114
  Transmission Date: 20100710
  Serious: Yes (Other)
  Sender: FDA-Public Use
  Company Number: PHHY2009CA53827

PATIENT
  Sex: Female

DRUGS (1)
  1. TEGRETOL-XR [Suspect]
     Indication: CONVULSION
     Dosage: 200 MG, UNK
     Route: 048
     Dates: start: 20060601

REACTIONS (6)
  - BLOOD URINE PRESENT [None]
  - DIZZINESS [None]
  - FLUSHING [None]
  - OESOPHAGEAL PAIN [None]
  - RASH [None]
  - TACHYCARDIA [None]
